FAERS Safety Report 18206613 (Version 26)
Quarter: 2021Q4

REPORT INFORMATION
  Report Type: Spontaneous
  Country: CA (occurrence: CA)
  Receive Date: 20200828
  Receipt Date: 20211227
  Transmission Date: 20220304
  Serious: Yes (Hospitalization, Other)
  Sender: FDA-Public Use
  Company Number: CA-CELLTRION INC.-2020CA022149

PATIENT

DRUGS (25)
  1. INFLECTRA [Suspect]
     Active Substance: INFLIXIMAB-DYYB
     Indication: Crohn^s disease
     Dosage: 5 MG/KG, (OR 200 MG) AT WEEK 2, AND 6, AND THEN EVERY 8 WEEKS / [THERAPY ON HOLD]
     Route: 042
     Dates: start: 20200316
  2. INFLECTRA [Suspect]
     Active Substance: INFLIXIMAB-DYYB
     Dosage: 200 MG, OR 5 MG/KG, INDUCTION AT WEEK 0, 2, AND 6, THEN EVERY 8 WEEKS
     Route: 042
     Dates: start: 20200316, end: 20200820
  3. INFLECTRA [Suspect]
     Active Substance: INFLIXIMAB-DYYB
     Dosage: 5 MG/KG, (OR 200 MG) AT WEEK 2, AND 6, AND THEN EVERY 8 WEEKS
     Route: 042
     Dates: start: 20200401
  4. INFLECTRA [Suspect]
     Active Substance: INFLIXIMAB-DYYB
     Dosage: 5 MG/KG, (OR 200 MG) AT WEEK 2, AND 6, AND THEN EVERY 8 WEEKS
     Route: 042
     Dates: start: 20200430
  5. INFLECTRA [Suspect]
     Active Substance: INFLIXIMAB-DYYB
     Dosage: 5 MG/KG, (OR 200 MG) AT WEEK 2, AND 6, AND THEN EVERY 8 WEEKS
     Route: 042
     Dates: start: 20200625, end: 20200625
  6. INFLECTRA [Suspect]
     Active Substance: INFLIXIMAB-DYYB
     Dosage: 5 MG/KG, (OR 200 MG) AT WEEK 2, AND 6, AND THEN EVERY 8 WEEKS
     Route: 042
     Dates: start: 20200625, end: 20200625
  7. INFLECTRA [Suspect]
     Active Substance: INFLIXIMAB-DYYB
     Dosage: 5 MG/KG, (OR 200 MG) AT WEEK 2, AND 6, AND THEN EVERY 8 WEEKS
     Route: 042
     Dates: start: 20200820
  8. INFLECTRA [Suspect]
     Active Substance: INFLIXIMAB-DYYB
     Dosage: 200 MG EVERY 8 WEEKS, RE-INDUCTION AT WEEK 2, AND 6 THEN Q 8 WEEKS
     Route: 042
     Dates: start: 20210225, end: 20210407
  9. INFLECTRA [Suspect]
     Active Substance: INFLIXIMAB-DYYB
     Dosage: 5 MG/KG, (OR 200 MG) AT WEEK 2, AND 6, AND THEN EVERY 8 WEEKS
     Route: 042
     Dates: start: 20210311
  10. INFLECTRA [Suspect]
     Active Substance: INFLIXIMAB-DYYB
     Dosage: 200 MG AT WEEK 2, AND 6, AND THEN EVERY 8 WEEKS
     Route: 042
     Dates: start: 20210407
  11. INFLECTRA [Suspect]
     Active Substance: INFLIXIMAB-DYYB
     Dosage: 200 MG, EVERY 4 WEEKS
     Route: 042
     Dates: start: 20210603
  12. INFLECTRA [Suspect]
     Active Substance: INFLIXIMAB-DYYB
     Dosage: 200 MG, EVERY 4 WEEKS
     Route: 042
     Dates: start: 20210628
  13. INFLECTRA [Suspect]
     Active Substance: INFLIXIMAB-DYYB
     Dosage: 200 MG, EVERY 4 WEEKS
     Route: 042
     Dates: start: 20210729
  14. INFLECTRA [Suspect]
     Active Substance: INFLIXIMAB-DYYB
     Dosage: 200 MG, EVERY 4 WEEKS
     Route: 042
     Dates: start: 20210826
  15. INFLECTRA [Suspect]
     Active Substance: INFLIXIMAB-DYYB
     Dosage: 200 MG, EVERY 4 WEEKS
     Route: 042
     Dates: start: 20210923
  16. INFLECTRA [Suspect]
     Active Substance: INFLIXIMAB-DYYB
     Dosage: 200 MG, EVERY 4 WEEKS
     Route: 042
     Dates: start: 20211021
  17. INFLECTRA [Suspect]
     Active Substance: INFLIXIMAB-DYYB
     Dosage: 200 MG, EVERY 4 WEEKS
     Route: 042
     Dates: start: 20211118
  18. INFLECTRA [Suspect]
     Active Substance: INFLIXIMAB-DYYB
     Dosage: 200 MG, EVERY 4 WEEKS
     Route: 042
     Dates: start: 20211118
  19. INFLECTRA [Suspect]
     Active Substance: INFLIXIMAB-DYYB
     Dosage: 200 MG, EVERY 4 WEEKS
     Route: 042
     Dates: start: 20211216
  20. ACETAMINOPHEN [Concomitant]
     Active Substance: ACETAMINOPHEN
     Indication: Premedication
     Dosage: 650 MG
     Dates: start: 20200625, end: 20200625
  21. ACETAMINOPHEN [Concomitant]
     Active Substance: ACETAMINOPHEN
     Dosage: 650 MG
     Route: 048
     Dates: start: 20210729, end: 20210729
  22. DIPHENHYDRAMINE [Concomitant]
     Active Substance: DIPHENHYDRAMINE
     Indication: Premedication
     Dosage: 25 MG
     Dates: start: 20200625, end: 20200625
  23. DIPHENHYDRAMINE [Concomitant]
     Active Substance: DIPHENHYDRAMINE
     Dosage: 25 MG
     Route: 042
     Dates: start: 20210729, end: 20210729
  24. IMURAN [Concomitant]
     Active Substance: AZATHIOPRINE
     Dosage: UNK
  25. PREDNISONE [Concomitant]
     Active Substance: PREDNISONE
     Dosage: 40 MG, DAILY (TAPERING)
     Route: 065
     Dates: start: 2020

REACTIONS (31)
  - Intestinal obstruction [Recovering/Resolving]
  - Anastomotic stenosis [Recovering/Resolving]
  - Abdominal wall infection [Unknown]
  - Iron deficiency anaemia [Recovered/Resolved]
  - COVID-19 [Unknown]
  - Infusion site pain [Unknown]
  - Abscess [Recovered/Resolved]
  - Fistula [Recovered/Resolved]
  - Anxiety [Unknown]
  - Condition aggravated [Not Recovered/Not Resolved]
  - Flatulence [Unknown]
  - Gastrooesophageal reflux disease [Unknown]
  - Hernia [Unknown]
  - Hepatomegaly [Unknown]
  - Incontinence [Unknown]
  - Infection [Unknown]
  - Ovarian cyst [Unknown]
  - Palpitations [Unknown]
  - Paraesthesia [Unknown]
  - Pyrexia [Recovering/Resolving]
  - Tachycardia [Recovering/Resolving]
  - Aphthous ulcer [Unknown]
  - Abscess [Unknown]
  - Infusion site bruising [Unknown]
  - Blood pressure decreased [Unknown]
  - Increased tendency to bruise [Unknown]
  - Inflammation [Unknown]
  - Ulcer [Unknown]
  - Off label use [Unknown]
  - Off label use [Unknown]
  - Inappropriate schedule of product administration [Unknown]

NARRATIVE: CASE EVENT DATE: 20200101
